FAERS Safety Report 7083334-4 (Version None)
Quarter: 2010Q4

REPORT INFORMATION
  Report Type: 
  Country: None (occurrence: None)
  Receive Date: 20101104
  Receipt Date: 20101028
  Transmission Date: 20110411
  Serious: Yes (Other)
  Sender: FDA-Public Use
  Company Number: PHHY2010CA41851

PATIENT
  Sex: Male

DRUGS (3)
  1. EXJADE [Suspect]
     Indication: APLASTIC ANAEMIA
     Dosage: 2000 MG, QD
     Route: 048
     Dates: start: 20100511
  2. ZOPICLONE [Concomitant]
     Dosage: 5 MG, QHS
  3. HOMEOPATHIC PREPARATIONS [Concomitant]

REACTIONS (5)
  - BLOOD IRON INCREASED [None]
  - DIARRHOEA [None]
  - MEMORY IMPAIRMENT [None]
  - PLATELET COUNT DECREASED [None]
  - URINE COLOUR ABNORMAL [None]
